FAERS Safety Report 5168323-9 (Version None)
Quarter: 2006Q4

REPORT INFORMATION
  Report Type: 
  Country: None (occurrence: None)
  Receive Date: 20061208
  Receipt Date: 20061130
  Transmission Date: 20070319
  Serious: Yes (Hospitalization, Other)
  Sender: FDA-Public Use
  Company Number: US-JNJFOC-20060501409

PATIENT
  Sex: Female
  Weight: 95.26 kg

DRUGS (13)
  1. DOXIL [Suspect]
     Indication: OVARIAN CANCER
  2. LEXAPRO [Concomitant]
  3. HYDROCODONE [Concomitant]
  4. B6 [Concomitant]
  5. KYTRIL [Concomitant]
  6. FERROUS SULFATE TAB [Concomitant]
  7. ZOFRAN [Concomitant]
  8. XANAX [Concomitant]
  9. THYROXIN [Concomitant]
  10. AMBIEN [Concomitant]
  11. WELLBUTRIN [Concomitant]
  12. ATIVAN [Concomitant]
  13. BUSPAR [Concomitant]

REACTIONS (5)
  - DISEASE PROGRESSION [None]
  - NEPHROPATHY [None]
  - NO THERAPEUTIC RESPONSE [None]
  - OVARIAN CANCER [None]
  - RENAL FAILURE [None]
